FAERS Safety Report 17506395 (Version 1)
Quarter: 2020Q1

REPORT INFORMATION
  Report Type: Spontaneous
  Country: HU (occurrence: HU)
  Receive Date: 20200305
  Receipt Date: 20200305
  Transmission Date: 20200409
  Serious: Yes (Other)
  Sender: FDA-Public Use
  Company Number: NVSC2020HU050279

PATIENT
  Age: 36 Year
  Sex: Male

DRUGS (6)
  1. DASATINIB. [Suspect]
     Active Substance: DASATINIB
     Indication: CHRONIC MYELOID LEUKAEMIA
     Dosage: 100 MG, QD (1X/DAY)
     Route: 065
     Dates: start: 20181127, end: 20181218
  2. ASCIMINIB [Suspect]
     Active Substance: ASCIMINIB
     Indication: CHRONIC MYELOID LEUKAEMIA
     Dosage: 40 MG, BID
     Route: 065
     Dates: start: 20190725
  3. ASCIMINIB [Suspect]
     Active Substance: ASCIMINIB
     Dosage: 20 MG, BID
     Route: 065
     Dates: start: 20190926
  4. REVOLADE [Suspect]
     Active Substance: ELTROMBOPAG
     Indication: PRODUCT USED FOR UNKNOWN INDICATION
     Dosage: UNK
     Route: 065
  5. NILOTINIB [Suspect]
     Active Substance: NILOTINIB
     Indication: CHRONIC MYELOID LEUKAEMIA
     Dosage: 300 MG, BID
     Route: 065
     Dates: start: 20180808, end: 20181030
  6. RASBURICASE [Concomitant]
     Active Substance: RASBURICASE
     Indication: PROPHYLAXIS
     Dosage: UNK
     Route: 065

REACTIONS (5)
  - Thrombocytopenia [Unknown]
  - Drug ineffective [Unknown]
  - Bone marrow failure [Unknown]
  - Cytogenetic analysis abnormal [Unknown]
  - Febrile neutropenia [Unknown]
